FAERS Safety Report 4711203-0 (Version None)
Quarter: 2005Q3

REPORT INFORMATION
  Report Type: 
  Country: None (occurrence: None)
  Receive Date: 20050708
  Receipt Date: 20050701
  Transmission Date: 20060218
  Serious: Yes (Life-Threatening)
  Sender: FDA-Public Use
  Company Number: 200511978GDS

PATIENT
  Age: 59 Year
  Sex: Female

DRUGS (25)
  1. ASPIRIN [Suspect]
     Dosage: 300 MG, TOTAL DAILY, ORAL
     Route: 048
     Dates: start: 20050225
  2. FRAXIPARIN (HEPARIN-FRACTION, CALCIUM SALT) [Suspect]
     Dosage: 0.4 MG, TOTAL DAILY, SUBCUTANE; SEE IMAGE
     Route: 058
     Dates: start: 20050203, end: 20050221
  3. FRAXIPARIN (HEPARIN-FRACTION, CALCIUM SALT) [Suspect]
     Dosage: 0.4 MG, TOTAL DAILY, SUBCUTANE; SEE IMAGE
     Route: 058
     Dates: start: 20050221
  4. FRAXIPARIN (HEPARIN-FRACTION, CALCIUM SALT) [Suspect]
     Dosage: 0.4 MG, TOTAL DAILY, SUBCUTANE; SEE IMAGE
     Route: 058
     Dates: start: 20050225
  5. ACENOCOUMAROL [Suspect]
     Dosage: 1 MG, TOTAL DAILY, ORAL; SEE IMAGE
     Route: 048
     Dates: end: 20050223
  6. ACENOCOUMAROL [Suspect]
     Dosage: 1 MG, TOTAL DAILY, ORAL; SEE IMAGE
     Route: 048
     Dates: start: 20050225
  7. ESCITALOPRAM OXALATE [Suspect]
     Dosage: 20 MG, TOTAL DAILY, ORAL
     Route: 048
  8. SIMVASTATIN [Suspect]
     Dosage: 20 MG, TOTAL DAILY, ORAL
     Route: 048
  9. OMEPRAZOLE [Suspect]
     Dosage: 20 MG, TOTAL DAILY, ORAL
     Route: 048
  10. ORLISTAT [Concomitant]
  11. DAFLON [Concomitant]
  12. XANAX [Concomitant]
  13. DETRUAITOL [Concomitant]
  14. CLONAZEPAM [Concomitant]
  15. BENERVA [Concomitant]
  16. BECOZYME C [Concomitant]
  17. MADOPAR [Concomitant]
  18. VITAMINE B6 [Concomitant]
  19. ROHYPNOL [Concomitant]
  20. DHEA [Concomitant]
  21. EFFORTIL PLUS  /GFR/ [Concomitant]
  22. DUSPATALIN [Concomitant]
  23. TILUR [Concomitant]
  24. KAPANOL [Concomitant]
  25. MORPHINE [Concomitant]

REACTIONS (14)
  - BLOOD DISORDER [None]
  - CARDIAC PERFORATION [None]
  - CARDIAC TAMPONADE [None]
  - CARDIOGENIC SHOCK [None]
  - DRUG INTERACTION [None]
  - ELECTROMECHANICAL DISSOCIATION [None]
  - INTESTINAL ISCHAEMIA [None]
  - ISCHAEMIC HEPATITIS [None]
  - LUNG INFILTRATION [None]
  - MULTI-ORGAN FAILURE [None]
  - PERICARDIAL HAEMORRHAGE [None]
  - RENAL FAILURE ACUTE [None]
  - SKIN ULCER [None]
  - SUPERINFECTION [None]
